FAERS Safety Report 10073694 (Version 4)
Quarter: 2014Q2

REPORT INFORMATION
  Report Type: Spontaneous
  Country: JP (occurrence: JP)
  Receive Date: 20140411
  Receipt Date: 20140523
  Transmission Date: 20141212
  Serious: Yes (Life-Threatening, Hospitalization)
  Sender: FDA-Public Use
  Company Number: JP-TAKEDA-2014TJP004682

PATIENT
  Age: 52 Year
  Sex: Male
  Weight: 64.8 kg

DRUGS (7)
  1. MUCOSTA [Concomitant]
     Indication: ABDOMINAL PAIN UPPER
     Dosage: 100 MG, QD
     Route: 048
     Dates: start: 20140213, end: 20140227
  2. MUCOSTA [Concomitant]
     Indication: ABDOMINAL PAIN UPPER
  3. ACTOS TABLETS 15 [Suspect]
     Indication: DIABETES MELLITUS
     Dosage: 15 MG, QD
     Route: 048
     Dates: start: 20140213, end: 20140304
  4. LOTRIGA [Suspect]
     Indication: HYPERLIPIDAEMIA
     Dosage: 2 G, QD
     Route: 048
     Dates: start: 20140213, end: 20140304
  5. LANTUS SOLOSTAR [Concomitant]
     Indication: DIABETES MELLITUS
     Dosage: 4 IU, QD
     Route: 050
     Dates: start: 20140228, end: 20140304
  6. MICAMLO AP [Concomitant]
     Indication: HYPERTENSION
     Dosage: 1 DF, QD
     Route: 048
     Dates: start: 20140213
  7. LOXONIN [Concomitant]
     Indication: SPINAL OSTEOARTHRITIS
     Dosage: 60 MG, TID
     Route: 048
     Dates: start: 20140213, end: 20140227

REACTIONS (7)
  - Platelet count decreased [Recovering/Resolving]
  - Hepatic function abnormal [Unknown]
  - Jaundice [Unknown]
  - Pyrexia [Recovering/Resolving]
  - Renal impairment [Recovering/Resolving]
  - Thirst [Unknown]
  - Headache [Unknown]
